FAERS Safety Report 4704315-9 (Version None)
Quarter: 2005Q2

REPORT INFORMATION
  Report Type: 
  Country: None (occurrence: None)
  Receive Date: 20050630
  Receipt Date: 20050617
  Transmission Date: 20051028
  Serious: Yes (Other)
  Sender: FDA-Public Use
  Company Number: 2005AC00905

PATIENT
  Age: 15 Year
  Sex: Female
  Weight: 87 kg

DRUGS (11)
  1. PROPOFOL [Suspect]
     Indication: LIFE SUPPORT
  2. NIMBEX [Suspect]
     Indication: NEUROMUSCULAR BLOCKADE
  3. VECURONIUM [Concomitant]
     Indication: NEUROMUSCULAR BLOCKADE
  4. ATRACURIUM [Concomitant]
     Indication: NEUROMUSCULAR BLOCKADE
  5. SOLU-MEDROL [Concomitant]
     Indication: LUNG INJURY
  6. AMINOGLYCOSIDE [Concomitant]
  7. LOOP DIURETICS [Concomitant]
  8. RANITIDINE [Concomitant]
  9. FENTANYL [Concomitant]
  10. DOPAMINE HCL [Concomitant]
  11. VITAMIN K [Concomitant]

REACTIONS (8)
  - ASTHENIA [None]
  - AUTOIMMUNE HEPATITIS [None]
  - COAGULOPATHY [None]
  - HEPATIC CIRRHOSIS [None]
  - MUSCLE NECROSIS [None]
  - MYOPATHY [None]
  - MYOPATHY STEROID [None]
  - URINARY TRACT INFECTION BACTERIAL [None]
